FAERS Safety Report 16336387 (Version 1)
Quarter: 2019Q2

REPORT INFORMATION
  Report Type: Spontaneous
  Country: GB (occurrence: GB)
  Receive Date: 20190521
  Receipt Date: 20190521
  Transmission Date: 20190711
  Serious: Yes (Life-Threatening, Other)
  Sender: FDA-Public Use
  Company Number: GB-ACCORD-128248

PATIENT
  Age: 43 Year
  Sex: Male

DRUGS (1)
  1. TACROLIMUS. [Suspect]
     Active Substance: TACROLIMUS
     Indication: IMMUNOSUPPRESSANT DRUG THERAPY
     Dates: start: 2016, end: 2017

REACTIONS (6)
  - Plasmacytoma [Unknown]
  - Superior vena cava occlusion [Unknown]
  - Arteriovenous fistula aneurysm [Recovered/Resolved]
  - Pericardial effusion [Unknown]
  - Pleural effusion [Recovering/Resolving]
  - Post transplant lymphoproliferative disorder [Unknown]

NARRATIVE: CASE EVENT DATE: 201707
